FAERS Safety Report 14794063 (Version 1)
Quarter: 2018Q2

REPORT INFORMATION
  Report Type: Spontaneous
  Country: GB (occurrence: GB)
  Receive Date: 20180423
  Receipt Date: 20180423
  Transmission Date: 20180711
  Serious: Yes (Other)
  Sender: FDA-Public Use
  Company Number: GB-SA-2018SA106674

PATIENT
  Age: 49 Year
  Sex: Male

DRUGS (7)
  1. MST CONTINUS [Concomitant]
     Active Substance: MORPHINE SULFATE
  2. RAMIPRIL. [Concomitant]
     Active Substance: RAMIPRIL
  3. GABAPENTIN. [Concomitant]
     Active Substance: GABAPENTIN
  4. CLOPIDOGREL BISULFATE. [Suspect]
     Active Substance: CLOPIDOGREL BISULFATE
     Route: 048
  5. BISOPROLOL [Concomitant]
     Active Substance: BISOPROLOL
  6. OMEPRAZOLE. [Concomitant]
     Active Substance: OMEPRAZOLE
  7. ATORVASTATIN [Concomitant]
     Active Substance: ATORVASTATIN

REACTIONS (1)
  - Angina pectoris [Not Recovered/Not Resolved]
